FAERS Safety Report 6864589-5 (Version None)
Quarter: 2010Q3

REPORT INFORMATION
  Report Type: 
  Country: None (occurrence: None)
  Receive Date: 20100721
  Receipt Date: 20080326
  Transmission Date: 20110219
  Serious: No
  Sender: FDA-Public Use
  Company Number: US-PFIZER INC-2008027031

PATIENT
  Sex: Female
  Weight: 68.2 kg

DRUGS (6)
  1. CHANTIX [Suspect]
     Indication: SMOKING CESSATION THERAPY
     Dates: start: 20080317
  2. GLIPIZIDE [Concomitant]
  3. SYNTHROID [Concomitant]
  4. AVANDIA [Concomitant]
  5. CRESTOR [Concomitant]
  6. ALL OTHER THERAPEUTIC PRODUCTS [Concomitant]

REACTIONS (1)
  - VOMITING [None]
